FAERS Safety Report 9402583 (Version 2)
Quarter: 2013Q3

REPORT INFORMATION
  Report Type: Spontaneous
  Country: CH (occurrence: CH)
  Receive Date: 20130716
  Receipt Date: 20130722
  Transmission Date: 20140515
  Serious: Yes (Hospitalization)
  Sender: FDA-Public Use
  Company Number: PHHY2013CH073048

PATIENT
  Age: 70 Year
  Sex: Male

DRUGS (3)
  1. RIFAMPICIN [Suspect]
     Indication: ANTIBIOTIC THERAPY
     Dosage: 500 MG, BID
  2. CIPROFLOXACIN [Suspect]
     Indication: ANTIBIOTIC THERAPY
     Dosage: 450 MG, BID
  3. TORASEMIDE [Concomitant]

REACTIONS (4)
  - Pulmonary hypertension [Recovered/Resolved]
  - Dyspnoea exertional [Recovered/Resolved]
  - Haemolysis [Recovered/Resolved]
  - Haemolytic anaemia [Recovered/Resolved]
